FAERS Safety Report 4342662-3 (Version None)
Quarter: 2004Q2

REPORT INFORMATION
  Report Type: 
  Country: None (occurrence: None)
  Receive Date: 20040416
  Receipt Date: 20040405
  Transmission Date: 20050107
  Serious: Yes (Hospitalization)
  Sender: FDA-Public Use
  Company Number: DE-JNJFOC-20040400945

PATIENT
  Age: 76 Year
  Sex: Female

DRUGS (4)
  1. ITRACOL (ITRACONAZOLE) TABLETS [Suspect]
     Indication: TINEA PEDIS
     Dosage: 1 DOSE (S), 1 IN 1 DAY
     Dates: start: 20040304, end: 20040315
  2. ACERBON (LISINOPRIL) [Concomitant]
  3. ACETYLSALICYLIC ACID SRT [Concomitant]
  4. FELODIPIN (FELODIPINE) [Concomitant]

REACTIONS (5)
  - BLOOD CREATINE INCREASED [None]
  - DYSPNOEA [None]
  - OEDEMA PERIPHERAL [None]
  - PLEURAL FIBROSIS [None]
  - WHITE BLOOD CELLS URINE POSITIVE [None]
